FAERS Safety Report 20524913 (Version 1)
Quarter: 2022Q1

REPORT INFORMATION
  Report Type: Spontaneous
  Country: US (occurrence: None)
  Receive Date: 20220225
  Receipt Date: 20220225
  Transmission Date: 20220423
  Serious: Yes (Death)
  Sender: FDA-Public Use
  Company Number: None

PATIENT
  Age: 62 Year
  Sex: Male

DRUGS (1)
  1. NIPENT [Suspect]
     Active Substance: PENTOSTATIN
     Indication: T-cell type acute leukaemia
     Dosage: INFUSE 0.0085 GM INTRAVENOUSLY EVERY WEEK
     Route: 042
     Dates: start: 20210514, end: 2021

REACTIONS (1)
  - Death [None]

NARRATIVE: CASE EVENT DATE: 20210722
